FAERS Safety Report 12254178 (Version 1)
Quarter: 2016Q2

REPORT INFORMATION
  Report Type: Spontaneous
  Country: US (occurrence: US)
  Receive Date: 20160411
  Receipt Date: 20160411
  Transmission Date: 20160815
  Serious: Yes (Other)
  Sender: FDA-Public Use
  Company Number: US-MDT-ADR-2015-02411

PATIENT
  Age: 48 Year
  Sex: Male

DRUGS (2)
  1. LIORESAL [Suspect]
     Active Substance: BACLOFEN
     Dosage: 215MCG/DAY
  2. LIORESAL [Suspect]
     Active Substance: BACLOFEN
     Dosage: 430MCG/DAY

REACTIONS (2)
  - Muscle tightness [Recovered/Resolved]
  - Back pain [Recovered/Resolved]
